FAERS Safety Report 16997694 (Version 1)
Quarter: 2019Q4

REPORT INFORMATION
  Report Type: Spontaneous
  Country: US (occurrence: US)
  Receive Date: 20191106
  Receipt Date: 20191106
  Transmission Date: 20200122
  Serious: Yes (Hospitalization)
  Sender: FDA-Public Use
  Company Number: US-BIOGEN-2019BI00802158

PATIENT
  Sex: Female

DRUGS (1)
  1. TECFIDERA [Suspect]
     Active Substance: DIMETHYL FUMARATE
     Indication: MULTIPLE SCLEROSIS
     Route: 065
     Dates: start: 20180123

REACTIONS (5)
  - Cardiac disorder [Unknown]
  - Fall [Recovered/Resolved]
  - Cerebrovascular accident [Unknown]
  - Cardiac murmur [Not Recovered/Not Resolved]
  - Confusional state [Unknown]
